FAERS Safety Report 7478507-2 (Version None)
Quarter: 2011Q2

REPORT INFORMATION
  Report Type: 
  Country: None (occurrence: None)
  Receive Date: 20110513
  Receipt Date: 20110505
  Transmission Date: 20111010
  Serious: Yes (Hospitalization)
  Sender: FDA-Public Use
  Company Number: PHHY2011FR38407

PATIENT
  Sex: Female
  Weight: 112 kg

DRUGS (6)
  1. IMOVANE [Concomitant]
     Dosage: 1 DF, QD
  2. PRADAXA [Interacting]
     Indication: PROPHYLAXIS
     Dosage: 75 MG, BID
     Dates: start: 20110405, end: 20110417
  3. DEPAKENE [Concomitant]
     Dosage: 500 MG, BID
  4. PAROXETINE HCL [Concomitant]
     Dosage: 20 MG, BID
  5. TEGRETOL [Suspect]
     Indication: EPILEPSY
     Dosage: 400 MG, DAILY
     Route: 048
  6. PHENOBARBITAL TAB [Interacting]
     Indication: EPILEPSY
     Dosage: 100 MG, DAILY

REACTIONS (2)
  - PULMONARY EMBOLISM [None]
  - DRUG INTERACTION [None]
